FAERS Safety Report 10128106 (Version 2)
Quarter: 2014Q2

REPORT INFORMATION
  Report Type: Spontaneous
  Country: US (occurrence: US)
  Receive Date: 20140428
  Receipt Date: 20140602
  Transmission Date: 20141212
  Serious: No
  Sender: FDA-Public Use
  Company Number: US-009507513-1404USA008402

PATIENT
  Sex: Female

DRUGS (1)
  1. NASONEX [Suspect]
     Dosage: 2 SPRAYS INTO EACH NOSTRIL, DAILY
     Route: 045
     Dates: start: 2010

REACTIONS (4)
  - Incorrect dose administered [Unknown]
  - Product container issue [Unknown]
  - Wrong technique in drug usage process [Unknown]
  - No adverse event [Unknown]
